FAERS Safety Report 5217778-X (Version None)
Quarter: 2006Q4

REPORT INFORMATION
  Report Type: 
  Country: None (occurrence: None)
  Receive Date: 20061130
  Receipt Date: 20060327
  Transmission Date: 20070319
  Serious: Yes (Hospitalization)
  Sender: FDA-Public Use
  Company Number: US200606003327

PATIENT
  Age: 39 Year
  Sex: Male
  Weight: 113.4 kg

DRUGS (1)
  1. ZYPREXA [Suspect]
     Indication: HALLUCINATION, AUDITORY
     Dosage: 20 MG
     Dates: start: 19971001, end: 20060301

REACTIONS (4)
  - BLOOD CHOLESTEROL [None]
  - BLOOD GLUCOSE INCREASED [None]
  - DIABETES MELLITUS [None]
  - OBESITY [None]
